FAERS Safety Report 5672733-0 (Version None)
Quarter: 2008Q1

REPORT INFORMATION
  Report Type: 
  Country: None (occurrence: None)
  Receive Date: 20080319
  Receipt Date: 20071231
  Transmission Date: 20080703
  Serious: No
  Sender: FDA-Public Use
  Company Number: US-KINGPHARMUSA00001-K200701653

PATIENT

DRUGS (3)
  1. ALTACE [Suspect]
     Indication: HYPERTENSION
     Dosage: 2.5 MG, QD
     Route: 048
     Dates: start: 20070101, end: 20070101
  2. ALTACE [Suspect]
     Dosage: 5 MG, QD
     Route: 048
     Dates: start: 20071101
  3. VITAMINS [Concomitant]
     Dosage: QD

REACTIONS (4)
  - DRUG INEFFECTIVE [None]
  - FATIGUE [None]
  - FEELING ABNORMAL [None]
  - PARAESTHESIA [None]
